FAERS Safety Report 5101955-2 (Version None)
Quarter: 2006Q3

REPORT INFORMATION
  Report Type: 
  Country: None (occurrence: None)
  Receive Date: 20060907
  Receipt Date: 20060828
  Transmission Date: 20061208
  Serious: No
  Sender: FDA-Public Use
  Company Number: 229287

PATIENT
  Age: 40 Year
  Sex: Female
  Weight: 63.5 kg

DRUGS (9)
  1. XOLAIR [Suspect]
     Indication: ASTHMA
     Dosage: 150 MG, Q2W, SUBCUTANEOUS
     Route: 058
     Dates: start: 20040303
  2. ALLEGRA [Concomitant]
  3. UNIPHYL [Concomitant]
  4. ACIDOPHILUS (LACTOBACILLUS ACIDOPHILUS) [Concomitant]
  5. ASTELIN [Concomitant]
  6. QVAR 40 [Concomitant]
  7. ADVAIR DISKUS 100/50 [Concomitant]
  8. XOPENEX [Concomitant]
  9. VENTOLIN (ALBUTEROL/ALBUTEROL SULFATE) [Concomitant]

REACTIONS (4)
  - BURSA CALCIFICATION [None]
  - BURSITIS [None]
  - TENDON CALCIFICATION [None]
  - TENDONITIS [None]
